FAERS Safety Report 12305215 (Version 2)
Quarter: 2016Q4

REPORT INFORMATION
  Report Type: Spontaneous
  Country: US (occurrence: US)
  Receive Date: 20160426
  Receipt Date: 20161012
  Transmission Date: 20170207
  Serious: Yes (Death)
  Sender: FDA-Public Use
  Company Number: US-ALKERMES INC.-ALK-2016-001047

PATIENT
  Age: 5 Decade
  Sex: Male

DRUGS (1)
  1. ARISTADA [Suspect]
     Active Substance: ARIPIPRAZOLE LAUROXIL
     Indication: PRODUCT USED FOR UNKNOWN INDICATION
     Dosage: 882 MG, QMO
     Route: 030
     Dates: start: 201601

REACTIONS (1)
  - Death [Fatal]
